FAERS Safety Report 22598805 (Version 3)
Quarter: 2023Q2

REPORT INFORMATION
  Report Type: Report from Study
  Country: NL (occurrence: NL)
  Receive Date: 20230614
  Receipt Date: 20230619
  Transmission Date: 20230722
  Serious: Yes (Death, Hospitalization)
  Sender: FDA-Public Use
  Company Number: NL-002147023-NVSC2023NL135313

PATIENT
  Age: 83 Year
  Sex: Male
  Weight: 54.8 kg

DRUGS (11)
  1. ACLASTA [Suspect]
     Active Substance: ZOLEDRONIC ACID
     Indication: Osteoporosis
     Dosage: 1 DOSAGE FORM, Q12MO (1 PER 52 WEEKS)
     Route: 042
     Dates: start: 20210625
  2. METHOTREXATE [Concomitant]
     Active Substance: METHOTREXATE
     Indication: Product used for unknown indication
     Dosage: 15 MG, QW
     Route: 058
     Dates: start: 201402
  3. PREDNISONE [Concomitant]
     Active Substance: PREDNISONE
     Indication: Product used for unknown indication
     Dosage: 2.5 MG
     Route: 065
     Dates: start: 201603
  4. RIVAROXABAN [Concomitant]
     Active Substance: RIVAROXABAN
     Indication: Product used for unknown indication
     Dosage: 20 MG, QD (1 X PER DAY 1 PIECE)
     Route: 048
  5. FOLIC ACID [Concomitant]
     Active Substance: FOLIC ACID
     Indication: Product used for unknown indication
     Dosage: 5 MG, QW (1 X PER WEEK 4 PIECES ON WEDNESDAY)
     Route: 048
  6. PANTOPRAZOLE [Concomitant]
     Active Substance: PANTOPRAZOLE
     Indication: Product used for unknown indication
     Dosage: 20 MG, QD (1 X PER DAY 1 PIECE) (TABLET WITH REGULATED RELEASE)
     Route: 048
  7. ALBUTEROL [Concomitant]
     Active Substance: ALBUTEROL
     Indication: Product used for unknown indication
     Dosage: 100 UG/DOSE, (IF NECESSARY 4 X A DAY 1 DOSE) (CFC FREE  INHALER)
  8. CHOLECALCIFEROL [Concomitant]
     Active Substance: CHOLECALCIFEROL
     Indication: Product used for unknown indication
     Dosage: 5600 IU (ONLY ON THURSDAY 2 PIECES)
     Route: 048
  9. PREDNISOLONE [Concomitant]
     Active Substance: PREDNISOLONE
     Indication: Product used for unknown indication
     Dosage: 5 MG, QD (1 X PER DAY 1 PIECE)
     Route: 048
  10. CYANOCOBALAMIN [Concomitant]
     Active Substance: CYANOCOBALAMIN
     Indication: Product used for unknown indication
     Dosage: 1000 UG, QD (1 X PER DAY1 PIECE)
     Route: 048
  11. CARBOMER [Concomitant]
     Active Substance: CARBOMER
     Indication: Product used for unknown indication
     Dosage: 2MG/G MINIMUM 0.6G (EYE), (IF NECESSARY 1 X PER DAY 1 DOSE FOR THE NIGHT BOTH EYES)
     Route: 047

REACTIONS (5)
  - Pneumonia streptococcal [Fatal]
  - Dyspnoea [Fatal]
  - Pneumonia aspiration [Fatal]
  - Klebsiella infection [Fatal]
  - Escherichia infection [Fatal]

NARRATIVE: CASE EVENT DATE: 20220908
